FAERS Safety Report 9248334 (Version 1)
Quarter: 2013Q1

REPORT INFORMATION
  Report Type: Spontaneous
  Country: US (occurrence: None)
  Receive Date: 20130305
  Receipt Date: 20130305
  Transmission Date: 20140127
  Serious: Yes (Other)
  Sender: FDA-Public Use
  Company Number: 163-21880-12092046

PATIENT
  Age: 79 Year
  Sex: Female
  Weight: 72.12 kg

DRUGS (9)
  1. REVLIMID [Suspect]
     Indication: MYELODYSPLASTIC SYNDROME
     Dosage: 5 MG, X 4 WEEKS, PO
     Dates: start: 20120815
  2. ASA (ACETYLSALICYLIC ACID) [Concomitant]
  3. B-COMPLEX (BECOSYM FORTE) [Concomitant]
  4. FUROSEMIDE (FUROSEMIDE) [Concomitant]
  5. METFORMIN (METFORMIN) [Concomitant]
  6. OMEPRAZOLE (OMEPRAZOLE) [Concomitant]
  7. POTASSIUM (POTASSIUM) [Concomitant]
  8. PROBIOTIC (BIFIDOBACTERIUM LACTIS) [Concomitant]
  9. VITAMIN D (ERGOCALCIFEROL) [Concomitant]

REACTIONS (2)
  - Muscle spasms [None]
  - Pain [None]
